FAERS Safety Report 7557332-8 (Version None)
Quarter: 2011Q2

REPORT INFORMATION
  Report Type: 
  Country: None (occurrence: None)
  Receive Date: 20110620
  Receipt Date: 20101208
  Transmission Date: 20111010
  Serious: Yes (Other)
  Sender: FDA-Public Use
  Company Number: PHHY2010DE92225

PATIENT
  Age: 64 Year
  Sex: Male

DRUGS (8)
  1. ZOLEDRONIC ACID [Suspect]
     Indication: HODGKIN'S DISEASE
  2. VINORELBINE [Concomitant]
     Indication: LUNG NEOPLASM MALIGNANT
  3. GEMCITABINE [Concomitant]
     Indication: LUNG NEOPLASM MALIGNANT
  4. LENALIDOMIDE [Concomitant]
     Indication: LUNG NEOPLASM MALIGNANT
  5. ZOLEDRONIC ACID [Suspect]
     Indication: LUNG NEOPLASM MALIGNANT
     Dosage: UNK UKN, UNK
     Route: 042
  6. VINORELBINE [Concomitant]
     Indication: HODGKIN'S DISEASE
  7. GEMCITABINE [Concomitant]
     Indication: HODGKIN'S DISEASE
  8. LENALIDOMIDE [Concomitant]
     Indication: HODGKIN'S DISEASE

REACTIONS (1)
  - OSTEONECROSIS OF JAW [None]
